FAERS Safety Report 7339590-8 (Version None)
Quarter: 2011Q1

REPORT INFORMATION
  Report Type: 
  Country: None (occurrence: None)
  Receive Date: 20110308
  Receipt Date: 20110302
  Transmission Date: 20110831
  Serious: Yes (Hospitalization)
  Sender: FDA-Public Use
  Company Number: US-B.I. PHARMACEUTICALS,INC./RIDGEFIELD-2011-BP-01613BP

PATIENT
  Age: 72 Year
  Sex: Female

DRUGS (20)
  1. PRADAXA [Suspect]
     Indication: THROMBOSIS
     Dosage: 300 MG
     Route: 048
     Dates: start: 20110118
  2. CLORAZEPATE DIPOTASSIUM [Concomitant]
  3. BACMIN [Concomitant]
  4. LACTULOSE [Concomitant]
  5. ZOFRAN [Concomitant]
     Route: 048
  6. MORPHINE [Concomitant]
     Indication: PAIN IN EXTREMITY
     Route: 048
  7. PRADAXA [Suspect]
     Indication: ATRIAL FIBRILLATION
     Dosage: 300 MG
     Route: 048
     Dates: start: 20101218, end: 20110114
  8. CARDIZEM [Concomitant]
  9. BUMEX [Concomitant]
  10. KOR-CON [Concomitant]
  11. ISORBIDE [Concomitant]
  12. NEXIUM [Concomitant]
  13. DIGONIN [Concomitant]
     Indication: HEART RATE
  14. PREMARIN [Concomitant]
  15. NIACIN [Concomitant]
  16. LOVASTATIN [Concomitant]
  17. PRANDIN [Concomitant]
     Indication: BLOOD GLUCOSE ABNORMAL
  18. MIRALAX [Concomitant]
  19. SYNTHROID [Concomitant]
  20. TOPROL-XL [Concomitant]

REACTIONS (4)
  - DYSPEPSIA [None]
  - DYSPNOEA [None]
  - CHEST PAIN [None]
  - GAIT DISTURBANCE [None]
